FAERS Safety Report 9933284 (Version 2)
Quarter: 2014Q1

REPORT INFORMATION
  Report Type: Report from Study
  Country: US (occurrence: US)
  Receive Date: 20140228
  Receipt Date: 20140228
  Transmission Date: 20141002
  Serious: No
  Sender: FDA-Public Use
  Company Number: US-MYLANLABS-2013S1003238

PATIENT
  Age: 15 Year
  Sex: Male

DRUGS (2)
  1. AMNESTEEM [Suspect]
     Route: 048
     Dates: start: 20130128, end: 201302
  2. AMNESTEEM [Suspect]
     Route: 048
     Dates: start: 201302

REACTIONS (1)
  - Drug prescribing error [Recovered/Resolved]
